FAERS Safety Report 9173673 (Version 1)
Quarter: 2013Q1

REPORT INFORMATION
  Report Type: Spontaneous
  Country: US (occurrence: US)
  Receive Date: 20130320
  Receipt Date: 20130320
  Transmission Date: 20140127
  Serious: No
  Sender: FDA-Public Use
  Company Number: US-B.I. PHARMACEUTICALS,INC./RIDGEFIELD-2013-BI-06455BP

PATIENT
  Age: 48 Year
  Sex: Male

DRUGS (2)
  1. VIRAMUNE SUSPENSION [Suspect]
     Indication: HIV INFECTION
     Route: 048
  2. VIRAMUNE [Suspect]
     Indication: HIV INFECTION
     Dosage: 400 MG
     Route: 048

REACTIONS (2)
  - Vomiting [Not Recovered/Not Resolved]
  - Diarrhoea [Not Recovered/Not Resolved]
